FAERS Safety Report 24687393 (Version 2)
Quarter: 2025Q2

REPORT INFORMATION
  Report Type: Spontaneous
  Country: JP (occurrence: JP)
  Receive Date: 20241202
  Receipt Date: 20250529
  Transmission Date: 20250717
  Serious: Yes (Other)
  Sender: ALCON
  Company Number: JP-ALCON LABORATORIES-ALC2024JP005180

PATIENT
  Age: 75 Year
  Sex: Female

DRUGS (2)
  1. BSS PLUS [Suspect]
     Active Substance: CALCIUM CHLORIDE\DEXTROSE\MAGNESIUM CHLORIDE\OXIGLUTATIONE\POTASSIUM CHLORIDE\SODIUM BICARBONATE\SOD
     Indication: Product used for unknown indication
     Route: 047
     Dates: start: 20241121
  2. EPINEPHRINE [Suspect]
     Active Substance: EPINEPHRINE
     Indication: Product used for unknown indication
     Route: 065
     Dates: start: 20241121

REACTIONS (5)
  - Corneal opacity [Recovering/Resolving]
  - Corneal striae [Recovering/Resolving]
  - Visual acuity reduced [Recovering/Resolving]
  - Corneal oedema [Recovering/Resolving]
  - Wrong technique in product usage process [Unknown]

NARRATIVE: CASE EVENT DATE: 20241121
